FAERS Safety Report 16643194 (Version 11)
Quarter: 2021Q1

REPORT INFORMATION
  Report Type: Report from Study
  Country: US (occurrence: US)
  Receive Date: 20190729
  Receipt Date: 20210106
  Transmission Date: 20210419
  Serious: Yes (Hospitalization)
  Sender: FDA-Public Use
  Company Number: PHEH2019US031472

PATIENT
  Age: 33 Year
  Sex: Female
  Weight: 108.86 kg

DRUGS (3)
  1. TREPROSTINIL. [Suspect]
     Active Substance: TREPROSTINIL
     Indication: PULMONARY ARTERIAL HYPERTENSION
     Dosage: 115 NG/KG/MIN (CONTINUOUS)
     Route: 042
     Dates: start: 20190621
  2. SILDENAFIL CITRATE. [Concomitant]
     Active Substance: SILDENAFIL CITRATE
     Indication: PRODUCT USED FOR UNKNOWN INDICATION
     Dosage: UNK
     Route: 065
  3. AMBRISENTAN [Concomitant]
     Active Substance: AMBRISENTAN
     Indication: PRODUCT USED FOR UNKNOWN INDICATION
     Dosage: UNK
     Route: 065

REACTIONS (7)
  - Infection [Unknown]
  - Bronchitis [Unknown]
  - Pulmonary thrombosis [Unknown]
  - Sepsis [Unknown]
  - Bacteraemia [Unknown]
  - Dyspnoea [Unknown]
  - Device related infection [Unknown]

NARRATIVE: CASE EVENT DATE: 20191231
